FAERS Safety Report 7741889-8 (Version None)
Quarter: 2011Q3

REPORT INFORMATION
  Report Type: 
  Country: None (occurrence: None)
  Receive Date: 20110912
  Receipt Date: 20110829
  Transmission Date: 20111222
  Serious: No
  Sender: FDA-Public Use
  Company Number: US-JNJFOC-20110902662

PATIENT
  Sex: Female
  Weight: 63.5 kg

DRUGS (14)
  1. DURAGESIC-100 [Suspect]
     Indication: RADICULAR PAIN
     Route: 062
     Dates: start: 20010101
  2. SANDOZ FENTANYL TRANSDERMAL SYSTEM [Suspect]
     Dosage: 3 X 12.5 UG/HR = 37.5 UG/HR PATCHES, NDC NUMBER 0781-7240-55
     Route: 062
     Dates: start: 20100101
  3. FENTANYL-100 [Suspect]
     Indication: ARTHRALGIA
     Route: 062
     Dates: end: 20100101
  4. SANDOZ FENTANYL TRANSDERMAL SYSTEM [Suspect]
     Dosage: 3 X 12.5 UG/HR = 37.5 UG/HR PATCHES, NDC NUMBER 0781-7240-55
     Route: 062
     Dates: start: 20100101
  5. FENTANYL-100 [Suspect]
     Indication: RADICULAR PAIN
     Route: 062
     Dates: end: 20100101
  6. SYNTHROID [Concomitant]
     Indication: HYPOTHYROIDISM
     Route: 048
  7. SIMVASTATIN [Concomitant]
     Indication: CARDIAC DISORDER
     Route: 048
  8. SANDOZ FENTANYL TRANSDERMAL SYSTEM [Suspect]
     Indication: RADICULAR PAIN
     Dosage: 3 X 12.5 UG/HR = 37.5 UG/HR PATCHES, NDC NUMBER 0781-7240-55
     Route: 062
     Dates: start: 20100101
  9. ESTRADIOL [Concomitant]
     Indication: HYSTERECTOMY
     Route: 048
  10. DURAGESIC-100 [Suspect]
     Indication: ARTHRALGIA
     Route: 062
     Dates: start: 20010101
  11. METOPROLOL SUCCINATE [Concomitant]
     Route: 048
  12. CYMBALTA [Concomitant]
     Indication: PAIN
     Route: 048
  13. BUPROPION HCL [Concomitant]
     Indication: DEPRESSION
     Route: 048
  14. SANDOZ FENTANYL TRANSDERMAL SYSTEM [Suspect]
     Indication: ARTHRALGIA
     Dosage: 3 X 12.5 UG/HR = 37.5 UG/HR PATCHES, NDC NUMBER 0781-7240-55
     Route: 062
     Dates: start: 20100101

REACTIONS (9)
  - NAUSEA [None]
  - DRUG PRESCRIBING ERROR [None]
  - WITHDRAWAL SYNDROME [None]
  - HEADACHE [None]
  - WRONG TECHNIQUE IN DRUG USAGE PROCESS [None]
  - TREMOR [None]
  - MUSCLE SPASMS [None]
  - PRODUCT QUALITY ISSUE [None]
  - INAPPROPRIATE SCHEDULE OF DRUG ADMINISTRATION [None]
